FAERS Safety Report 14523409 (Version 3)
Quarter: 2018Q2

REPORT INFORMATION
  Report Type: Spontaneous
  Country: ES (occurrence: ES)
  Receive Date: 20180212
  Receipt Date: 20180423
  Transmission Date: 20180711
  Serious: Yes (Hospitalization, Other)
  Sender: FDA-Public Use
  Company Number: ES-ASTRAZENECA-2018SE16198

PATIENT
  Age: 81 Year
  Sex: Female
  Weight: 43.9 kg

DRUGS (7)
  1. PRIMPERAN [Concomitant]
     Active Substance: METOCLOPRAMIDE HYDROCHLORIDE
     Dosage: 10.0MG UNKNOWN
     Route: 048
  2. ATACAND PLUS [Suspect]
     Active Substance: CANDESARTAN CILEXETIL\HYDROCHLOROTHIAZIDE
     Indication: PRODUCT USED FOR UNKNOWN INDICATION
     Dosage: 16/12.5 MG, DAILY
     Route: 048
     Dates: start: 2017, end: 20171215
  3. BUDESONIDE. [Concomitant]
     Active Substance: BUDESONIDE
     Dosage: 800.0UG/INHAL UNKNOWN
     Route: 045
  4. PANTOPRAZOLE [Concomitant]
     Active Substance: PANTOPRAZOLE
     Route: 048
  5. KREON [Concomitant]
     Active Substance: PANCRELIPASE
     Dosage: 3.0DF UNKNOWN
     Route: 048
  6. ATACAND PLUS [Suspect]
     Active Substance: CANDESARTAN CILEXETIL\HYDROCHLOROTHIAZIDE
     Route: 048
     Dates: start: 2017, end: 20171215
  7. BUSCAPINA [Concomitant]
     Route: 048

REACTIONS (6)
  - Drug interaction [Unknown]
  - Hypoosmolar state [Recovered/Resolved]
  - Hyponatraemia [Recovered/Resolved]
  - Generalised tonic-clonic seizure [Recovered/Resolved]
  - Wrong technique in product usage process [Recovered/Resolved]
  - Depressed level of consciousness [Recovered/Resolved]

NARRATIVE: CASE EVENT DATE: 20171215
